FAERS Safety Report 18716057 (Version 2)
Quarter: 2021Q1

REPORT INFORMATION
  Report Type: Other
  Country: DE (occurrence: DE)
  Receive Date: 20210108
  Receipt Date: 20210301
  Transmission Date: 20210419
  Serious: No
  Sender: FDA-Public Use
  Company Number: DE-ROCHE-2584950

PATIENT
  Age: 30 Year
  Sex: Female
  Weight: 91 kg

DRUGS (19)
  1. OCRELIZUMAB. [Suspect]
     Active Substance: OCRELIZUMAB
     Indication: MULTIPLE SCLEROSIS
     Route: 042
     Dates: start: 20180329, end: 20180411
  2. PREGABALIN. [Concomitant]
     Active Substance: PREGABALIN
     Indication: PARAESTHESIA
     Route: 048
     Dates: start: 20180430, end: 20180620
  3. PREGABALIN. [Concomitant]
     Active Substance: PREGABALIN
     Route: 048
     Dates: start: 20180621, end: 20180815
  4. PREDNISOLUT [Concomitant]
     Active Substance: PREDNISOLONE
     Indication: PROPHYLAXIS
     Route: 048
     Dates: start: 20180411, end: 20180411
  5. PREDNISOLUT [Concomitant]
     Active Substance: PREDNISOLONE
     Route: 042
     Dates: start: 20200403, end: 20200403
  6. RANITIDIN [Concomitant]
     Active Substance: RANITIDINE HYDROCHLORIDE
     Route: 048
     Dates: start: 20190417, end: 20190419
  7. OCRELIZUMAB. [Suspect]
     Active Substance: OCRELIZUMAB
     Indication: RELAPSING MULTIPLE SCLEROSIS
     Route: 042
     Dates: start: 20181018
  8. FLOHSAMEN [Concomitant]
     Route: 048
  9. VITAMIN B12 [Concomitant]
     Active Substance: CYANOCOBALAMIN
     Indication: PROPHYLAXIS
     Route: 048
     Dates: start: 20190117
  10. RANITIDIN [Concomitant]
     Active Substance: RANITIDINE HYDROCHLORIDE
     Indication: PROPHYLAXIS
     Route: 048
     Dates: start: 20180410, end: 20180412
  11. AERIUS [Concomitant]
     Indication: PROPHYLAXIS
     Route: 048
     Dates: start: 20180410, end: 20180412
  12. AERIUS [Concomitant]
     Route: 048
     Dates: start: 20190417, end: 20190419
  13. ZOPICLON [Concomitant]
     Active Substance: ZOPICLONE
     Indication: PROPHYLAXIS
     Route: 048
     Dates: start: 20180623, end: 20180623
  14. PREDNISOLUT [Concomitant]
     Active Substance: PREDNISOLONE
     Route: 042
     Dates: start: 20180329, end: 20180329
  15. PREDNISOLON [Concomitant]
     Active Substance: PREDNISOLONE
     Indication: PROPHYLAXIS
     Route: 042
     Dates: start: 20190418, end: 20190418
  16. DEKRISTOL [Concomitant]
     Active Substance: CHOLECALCIFEROL
     Indication: PROPHYLAXIS
     Route: 048
     Dates: start: 20181011
  17. RANITIDIN [Concomitant]
     Active Substance: RANITIDINE HYDROCHLORIDE
     Route: 048
     Dates: start: 20180328, end: 20180330
  18. AERIUS [Concomitant]
     Route: 048
     Dates: start: 20180328, end: 20180330
  19. URBASON [Concomitant]
     Active Substance: METHYLPREDNISOLONE
     Indication: PARAESTHESIA
     Route: 042
     Dates: start: 20180622, end: 20180624

REACTIONS (1)
  - COVID-19 [Recovered/Resolved]

NARRATIVE: CASE EVENT DATE: 20200408
